FAERS Safety Report 18935539 (Version 1)
Quarter: 2021Q1

REPORT INFORMATION
  Report Type: Spontaneous
  Country: CA (occurrence: CA)
  Receive Date: 20210225
  Receipt Date: 20210225
  Transmission Date: 20210420
  Serious: Yes (Life-Threatening, Hospitalization)
  Sender: FDA-Public Use
  Company Number: CA-TEVA-2021-CA-1882392

PATIENT
  Age: 5 Week
  Sex: Female

DRUGS (4)
  1. MAGNESIUM SULFATE INJECTION, USP [Suspect]
     Active Substance: MAGNESIUM SULFATE
     Dosage: SOLUTION INTRAMUSCULAR
     Route: 064
  2. VENLAFAXINE XR [Suspect]
     Active Substance: VENLAFAXINE HYDROCHLORIDE
     Indication: DEPRESSION
     Dosage: EXTENDED RELEASE
     Route: 064
  3. VENLAFAXINE XR [Suspect]
     Active Substance: VENLAFAXINE HYDROCHLORIDE
     Indication: ANXIETY
  4. MAGNESIUM SULFATE INJECTION, USP [Suspect]
     Active Substance: MAGNESIUM SULFATE
     Indication: PRE-ECLAMPSIA
     Dosage: 24 GRAM DAILY; SOLUTION INTRAMUSCULAR
     Route: 064

REACTIONS (9)
  - Bradypnoea [Recovered/Resolved]
  - Mechanical ventilation [Recovered/Resolved]
  - Respiratory distress [Recovered/Resolved]
  - Resuscitation [Recovered/Resolved]
  - Foetal exposure timing unspecified [Recovered/Resolved]
  - Endotracheal intubation [Recovered/Resolved]
  - Altered state of consciousness [Recovered/Resolved]
  - Acidosis [Recovered/Resolved]
  - Hypoventilation neonatal [Recovered/Resolved]
